FAERS Safety Report 8670979 (Version 3)
Quarter: 2016Q3

REPORT INFORMATION
  Report Type: Spontaneous
  Country: US (occurrence: US)
  Receive Date: 20120718
  Receipt Date: 20160823
  Transmission Date: 20161109
  Serious: No
  Sender: FDA-Public Use
  Company Number: US-ASTRAZENECA-2012SE43583

PATIENT
  Age: 59 Year
  Sex: Female
  Weight: 63.5 kg

DRUGS (6)
  1. SYMBICORT [Suspect]
     Active Substance: BUDESONIDE\FORMOTEROL FUMARATE DIHYDRATE
     Indication: CHRONIC OBSTRUCTIVE PULMONARY DISEASE
     Dosage: 160/4.5 MCG, 2 PUFFS, TWO TIMES A DAY
     Route: 055
  2. VENTOLIN HFA [Concomitant]
     Active Substance: ALBUTEROL SULFATE
     Indication: DYSPNOEA
     Dosage: AS REQUIRED
     Route: 055
  3. SYMBICORT [Suspect]
     Active Substance: BUDESONIDE\FORMOTEROL FUMARATE DIHYDRATE
     Indication: CHRONIC OBSTRUCTIVE PULMONARY DISEASE
     Dosage: 160/4.5 MCG, 2 PUFFS TWO TIMES A DAY
     Route: 055
     Dates: start: 20160410
  4. VENTOLIN HFA [Concomitant]
     Active Substance: ALBUTEROL SULFATE
     Indication: WHEEZING
     Dosage: AS REQUIRED
     Route: 055
  5. MULTIVITAMIN [Concomitant]
     Active Substance: VITAMINS
     Route: 048
  6. PREDNISONE. [Concomitant]
     Active Substance: PREDNISONE
     Indication: RHEUMATOID ARTHRITIS
     Route: 048
     Dates: start: 201603

REACTIONS (13)
  - Rheumatoid arthritis [Unknown]
  - Arthralgia [Unknown]
  - Intentional product misuse [Unknown]
  - Hypersensitivity [Unknown]
  - Fall [Unknown]
  - Exercise tolerance decreased [Unknown]
  - Wheezing [Unknown]
  - Accident [Unknown]
  - Fatigue [Unknown]
  - Device failure [Unknown]
  - Dyspnoea [Unknown]
  - Seasonal allergy [Unknown]
  - Sinus disorder [Unknown]

NARRATIVE: CASE EVENT DATE: 2015
